FAERS Safety Report 16793111 (Version 12)
Quarter: 2021Q3

REPORT INFORMATION
  Report Type: Report from Study
  Country: None (occurrence: JP)
  Receive Date: 20190911
  Receipt Date: 20210706
  Transmission Date: 20211014
  Serious: Yes (Hospitalization)
  Sender: FDA-Public Use
  Company Number: JP-ABBVIE-19K-087-2918666-00

PATIENT
  Age: 77 Year
  Sex: Female
  Weight: 41 kg

DRUGS (14)
  1. DUODOPA [Suspect]
     Active Substance: CARBIDOPA\LEVODOPA
  2. CHLORPHENIRAMINE MALEATE. [Concomitant]
     Active Substance: CHLORPHENIRAMINE MALEATE
     Indication: PRODUCT USED FOR UNKNOWN INDICATION
     Dosage: D?CHLORPHENIRAMINE MALEATE
     Route: 048
  3. ELDECALCITOL [Concomitant]
     Active Substance: ELDECALCITOL
     Indication: PRODUCT USED FOR UNKNOWN INDICATION
     Route: 048
  4. MIROGABALIN BESILATE [Concomitant]
     Indication: PRODUCT USED FOR UNKNOWN INDICATION
     Route: 048
  5. ROTIGOTINE [Concomitant]
     Active Substance: ROTIGOTINE
     Indication: PARKINSON^S DISEASE
     Route: 062
  6. SODIUM CITRATE DIHYDRATE [Concomitant]
     Active Substance: TRISODIUM CITRATE DIHYDRATE
     Indication: PRODUCT USED FOR UNKNOWN INDICATION
     Route: 048
  7. DUODOPA [Suspect]
     Active Substance: CARBIDOPA\LEVODOPA
     Indication: PARKINSON^S DISEASE
     Dosage: MD: 6.5 ML, CD: 2.1 ML/HR X 16 HRS,ED: 1 ML/UNIT X 3
     Route: 050
     Dates: start: 20190725
  8. DOMPERIDONE [Concomitant]
     Active Substance: DOMPERIDONE
     Indication: PRODUCT USED FOR UNKNOWN INDICATION
     Route: 048
  9. LANSOPRAZOLE. [Concomitant]
     Active Substance: LANSOPRAZOLE
     Indication: PRODUCT USED FOR UNKNOWN INDICATION
     Route: 048
  10. EPINASTINE HYDROCHLORIDE. [Concomitant]
     Active Substance: EPINASTINE HYDROCHLORIDE
     Indication: PRODUCT USED FOR UNKNOWN INDICATION
     Route: 048
  11. ELOBIXIBAT [Concomitant]
     Active Substance: ELOBIXIBAT
     Indication: PRODUCT USED FOR UNKNOWN INDICATION
     Dosage: ELOBIXIBAT HYDRATE
     Route: 048
  12. CARBIDOPA, LEVODOPA AND ENTACAPONE [Concomitant]
     Active Substance: CARBIDOPA\ENTACAPONE\LEVODOPA
     Indication: PARKINSON^S DISEASE
     Route: 048
  13. ISTRADEFYLLINE [Concomitant]
     Active Substance: ISTRADEFYLLINE
     Indication: PARKINSON^S DISEASE
     Route: 048
  14. SOLIFENACIN SUCCINATE. [Concomitant]
     Active Substance: SOLIFENACIN SUCCINATE
     Indication: PRODUCT USED FOR UNKNOWN INDICATION
     Dosage: 5 UNKNOWN
     Route: 048

REACTIONS (18)
  - Ear pain [Unknown]
  - Device issue [Unknown]
  - Device placement issue [Unknown]
  - Malaise [Unknown]
  - Stoma site erythema [Unknown]
  - Malaise [Unknown]
  - Stoma site discharge [Recovering/Resolving]
  - Stoma site hypergranulation [Recovering/Resolving]
  - Stoma site pain [Recovering/Resolving]
  - Urticaria [Recovered/Resolved]
  - Back pain [Recovered/Resolved]
  - On and off phenomenon [Unknown]
  - Medical device site pain [Unknown]
  - Back pain [Unknown]
  - Cough [Unknown]
  - Urinary incontinence [Unknown]
  - Injury associated with device [Recovered/Resolved]
  - Pollakiuria [Not Recovered/Not Resolved]

NARRATIVE: CASE EVENT DATE: 2019
